FAERS Safety Report 8077712-4 (Version None)
Quarter: 2012Q1

REPORT INFORMATION
  Report Type: 
  Country: None (occurrence: None)
  Receive Date: 20120127
  Receipt Date: 20120125
  Transmission Date: 20120608
  Serious: Yes (Life-Threatening)
  Sender: FDA-Public Use
  Company Number: FR-VALEANT-2012VX000463

PATIENT
  Age: 75 Year
  Sex: Female

DRUGS (8)
  1. SUFENTA PRESERVATIVE FREE [Suspect]
     Route: 042
     Dates: start: 20110913, end: 20110913
  2. NIMBEX [Suspect]
     Route: 042
     Dates: start: 20110913, end: 20110913
  3. DIPRIVAN [Suspect]
     Route: 042
     Dates: start: 20110913, end: 20110913
  4. PROSTIGMIN BROMIDE [Suspect]
     Route: 042
     Dates: start: 20110913, end: 20110913
  5. SEVOFLURANE [Suspect]
     Route: 042
     Dates: start: 20110913, end: 20110913
  6. TRAMADOL HCL [Suspect]
     Route: 065
     Dates: start: 20110913, end: 20110913
  7. ATROPINE [Suspect]
     Indication: NEUROMUSCULAR BLOCKADE REVERSAL
     Route: 065
     Dates: start: 20110913
  8. DEFAMANDOLE PANFARMA [Suspect]
     Route: 042
     Dates: start: 20110913, end: 20110913

REACTIONS (5)
  - SINUS TACHYCARDIA [None]
  - BLOOD PRESSURE DECREASED [None]
  - LARYNGEAL OEDEMA [None]
  - DYSARTHRIA [None]
  - ERYTHEMA [None]
